FAERS Safety Report 17273867 (Version 1)
Quarter: 2020Q1

REPORT INFORMATION
  Report Type: Spontaneous
  Country: US (occurrence: US)
  Receive Date: 20191224
  Receipt Date: 20191224
  Transmission Date: 20200409
  Serious: Yes (Hospitalization)
  Sender: FDA-Public Use
  Company Number: None

PATIENT
  Age: 76 Year
  Sex: Male
  Weight: 72.2 kg

DRUGS (6)
  1. ETOPOSIDE (VP-16) [Suspect]
     Active Substance: ETOPOSIDE
     Dates: end: 20191117
  2. RITUXIMAB (MOAB C2B8 ANNTI CD20, CHIMERIC) [Suspect]
     Active Substance: RITUXIMAB
     Dates: end: 20191114
  3. VINCRISTINE SULFATE. [Suspect]
     Active Substance: VINCRISTINE SULFATE
     Dates: end: 20191117
  4. CYCLOPHOSPHAMIDE. [Suspect]
     Active Substance: CYCLOPHOSPHAMIDE
     Dates: end: 20191119
  5. DOXORUBICIN HYDROCHLORIDE. [Suspect]
     Active Substance: DOXORUBICIN HYDROCHLORIDE
     Dates: end: 20191117
  6. PREDNISONE. [Suspect]
     Active Substance: PREDNISONE
     Dates: end: 20191119

REACTIONS (13)
  - Hypophagia [None]
  - Upper gastrointestinal haemorrhage [None]
  - Atrial fibrillation [None]
  - Chest X-ray abnormal [None]
  - Lung opacity [None]
  - Escherichia sepsis [None]
  - Clostridium test positive [None]
  - Bacteraemia [None]
  - Thrombocytopenia [None]
  - Hypotension [None]
  - Escherichia test positive [None]
  - Lethargy [None]
  - Diarrhoea [None]

NARRATIVE: CASE EVENT DATE: 20191125
